FAERS Safety Report 8169193-7 (Version None)
Quarter: 2012Q1

REPORT INFORMATION
  Report Type: 
  Country: None (occurrence: None)
  Receive Date: 20120227
  Receipt Date: 20120217
  Transmission Date: 20120608
  Serious: Yes (Hospitalization, Other)
  Sender: FDA-Public Use
  Company Number: US-ASTRAZENECA-2010SE51004

PATIENT
  Sex: Female
  Weight: 122.5 kg

DRUGS (14)
  1. SEROQUEL [Suspect]
     Indication: BIPOLAR DISORDER
     Route: 048
  2. SEROQUEL [Suspect]
     Indication: INSOMNIA
     Route: 048
  3. DILTIAZEM HCL [Concomitant]
     Indication: HYPERTENSION
  4. FLUOXETINE HCL [Concomitant]
     Indication: ANXIETY
  5. SIMVASTATIN [Concomitant]
     Indication: HYPERCHOLESTEROLAEMIA
  6. LAMOTRIGINE [Concomitant]
     Dosage: TWO TIMES A DAY
  7. LISINOPRIL [Concomitant]
     Indication: CARDIAC DISORDER
  8. BUPROPION HYDROCHLORIDE [Concomitant]
     Indication: ANXIETY
  9. NAPROXEN [Concomitant]
     Indication: ARTHRALGIA
  10. ASPIRIN [Concomitant]
     Indication: CARDIOVASCULAR EVENT PROPHYLAXIS
  11. SEROQUEL [Suspect]
     Indication: ANXIETY
     Route: 048
  12. HYDROCODONE [Concomitant]
     Indication: ARTHRALGIA
     Dosage: 7.5/500 PRN
  13. LORAZEPAM [Concomitant]
     Indication: ANXIETY
  14. BUPROPION HYDROCHLORIDE [Concomitant]
     Indication: DEPRESSION

REACTIONS (4)
  - VASCULITIS [None]
  - ARTHRITIS [None]
  - FOOT FRACTURE [None]
  - MUSCLE SPASMS [None]
